FAERS Safety Report 9722079 (Version 1)
Quarter: 2013Q4

REPORT INFORMATION
  Report Type: Spontaneous
  Country: US (occurrence: US)
  Receive Date: 20131202
  Receipt Date: 20131202
  Transmission Date: 20140711
  Serious: No
  Sender: FDA-Public Use
  Company Number: US-BIOGENIDEC-2013BI098445

PATIENT
  Age: 30 Year
  Sex: Female

DRUGS (5)
  1. TECFIDERA [Suspect]
     Indication: PRODUCT USED FOR UNKNOWN INDICATION
     Route: 048
  2. TECFIDERA [Suspect]
     Indication: PRODUCT USED FOR UNKNOWN INDICATION
     Route: 048
  3. PREVACID [Concomitant]
  4. PENTASSA [Concomitant]
  5. IRON [Concomitant]

REACTIONS (4)
  - Medication error [Recovered/Resolved]
  - Muscle spasms [Unknown]
  - Abdominal pain [Unknown]
  - Diarrhoea [Unknown]
